FAERS Safety Report 11579135 (Version 1)
Quarter: 2015Q3

REPORT INFORMATION
  Report Type: Spontaneous
  Country: BR (occurrence: BR)
  Receive Date: 20150930
  Receipt Date: 20150930
  Transmission Date: 20151125
  Serious: Yes (Life-Threatening, Hospitalization)
  Sender: FDA-Public Use
  Company Number: BR-FRESENIUS KABI-FK201504581

PATIENT
  Age: 80 Year
  Sex: Male

DRUGS (1)
  1. SODIUM CHLORIDE 0.9% W/V AND GLUCOSE 5% W/V SOLUTION FOR INFUSION BP [Suspect]
     Active Substance: DEXTROSE\SODIUM CHLORIDE
     Indication: CEREBROVASCULAR ACCIDENT
     Route: 042

REACTIONS (1)
  - Shock [Recovered/Resolved]

NARRATIVE: CASE EVENT DATE: 20150903
